FAERS Safety Report 25410590 (Version 1)
Quarter: 2025Q2

REPORT INFORMATION
  Report Type: Spontaneous
  Country: US (occurrence: US)
  Receive Date: 20250609
  Receipt Date: 20250609
  Transmission Date: 20250716
  Serious: No
  Sender: SANOFI AVENTIS
  Company Number: US-SA-2025SA161342

PATIENT
  Sex: Female
  Weight: 57.27 kg

DRUGS (11)
  1. DUPIXENT [Suspect]
     Active Substance: DUPILUMAB
     Indication: Idiopathic urticaria
     Dosage: 300 MG, QOW
     Route: 058
  2. LUMRYZ [Suspect]
     Active Substance: SODIUM OXYBATE
  3. MIRTAZAPINE [Concomitant]
     Active Substance: MIRTAZAPINE
  4. KETAMINE HYDROCHLORIDE [Concomitant]
     Active Substance: KETAMINE HYDROCHLORIDE
  5. VITAMINS NOS [Concomitant]
     Active Substance: VITAMINS
  6. IRON [Concomitant]
     Active Substance: IRON
  7. LIDOCAINE [Concomitant]
     Active Substance: LIDOCAINE
  8. DIAZEPAM [Concomitant]
     Active Substance: DIAZEPAM
  9. EFFEXOR [Concomitant]
     Active Substance: VENLAFAXINE HYDROCHLORIDE
  10. ADDERALL [Concomitant]
     Active Substance: AMPHETAMINE ASPARTATE\AMPHETAMINE SULFATE\DEXTROAMPHETAMINE SACCHARATE\DEXTROAMPHETAMINE SULFATE
  11. PROVIGIL [Concomitant]
     Active Substance: MODAFINIL

REACTIONS (3)
  - Somnolence [Not Recovered/Not Resolved]
  - Gastrointestinal disorder [Unknown]
  - Product use in unapproved indication [Unknown]
